FAERS Safety Report 9433683 (Version 2)
Quarter: 2013Q4

REPORT INFORMATION
  Report Type: Spontaneous
  Country: BR (occurrence: BR)
  Receive Date: 20130731
  Receipt Date: 20131015
  Transmission Date: 20140711
  Serious: Yes (Hospitalization)
  Sender: FDA-Public Use
  Company Number: BR-BIOMARINAP-BR-2013-101206

PATIENT
  Age: 18 Year
  Sex: Female
  Weight: 60 kg

DRUGS (4)
  1. ALDURAZYME [Suspect]
     Indication: MUCOPOLYSACCHARIDOSIS I
     Dosage: UNK, QW
     Route: 042
     Dates: start: 20100622
  2. MAREVAN [Concomitant]
     Indication: PAIN
  3. FUROSEMIDE [Concomitant]
     Indication: PAIN
  4. OMEPRAZOLE [Concomitant]
     Indication: PAIN

REACTIONS (5)
  - Cardiac failure chronic [Recovered/Resolved]
  - Right ventricular dysfunction [Recovered/Resolved]
  - Mitral valve stenosis [Recovered/Resolved]
  - Pulmonary hypertension [Recovered/Resolved]
  - Cardiac flutter [Recovered/Resolved]
